FAERS Safety Report 9883715 (Version 2)
Quarter: 2014Q1

REPORT INFORMATION
  Report Type: Spontaneous
  Country: US (occurrence: US)
  Receive Date: 20140210
  Receipt Date: 20140321
  Transmission Date: 20141002
  Serious: No
  Sender: FDA-Public Use
  Company Number: US-009507513-1402USA003837

PATIENT
  Sex: Female

DRUGS (2)
  1. AZASITE [Suspect]
     Indication: BLEPHARITIS
     Dosage: UNK, 3 TIMES PER WEEK IN BOTH EYES, INSTILLATION
     Route: 047
     Dates: start: 201202
  2. AZASITE [Suspect]
     Dosage: UNK, 2 TIMES PER WEEK IN BOTH EYES, INSTILLATION
     Route: 047

REACTIONS (3)
  - Dermatitis [Recovering/Resolving]
  - Eyelid exfoliation [Not Recovered/Not Resolved]
  - Medication error [Unknown]
